FAERS Safety Report 6633985-3 (Version None)
Quarter: 2010Q1

REPORT INFORMATION
  Report Type: 
  Country: None (occurrence: None)
  Receive Date: 20100315
  Receipt Date: 20100301
  Transmission Date: 20100710
  Serious: Yes (Other)
  Sender: FDA-Public Use
  Company Number: PHEH2008US09014

PATIENT
  Sex: Female
  Weight: 60.771 kg

DRUGS (50)
  1. AREDIA [Suspect]
     Dosage: UNK
     Dates: start: 20000701, end: 20070601
  2. PROMETHAZINE [Concomitant]
     Dosage: 25MG PO Q4HRS PRN
     Route: 048
  3. VALTREX [Concomitant]
     Dosage: 1000MG PO TID
     Route: 048
  4. QUININE SULFATE [Concomitant]
     Dosage: 260MG PO QHS
     Route: 048
  5. LORTAB [Concomitant]
     Dosage: 5-500MG Q4HR PRN
     Route: 048
  6. FEMARA [Concomitant]
     Dosage: 2.5MG PO QD
     Route: 048
  7. TRAZODONE HYDROCHLORIDE [Concomitant]
     Dosage: PO
     Route: 048
  8. NEURONTIN [Concomitant]
     Dosage: 300MG PO TID
     Route: 048
  9. EFFEXOR [Concomitant]
     Dosage: 37.5MG PO BID
     Route: 048
  10. AMBIEN [Concomitant]
     Dosage: 5MG PO HS PRN
     Route: 048
  11. IMITREX ^CERENEX^ [Concomitant]
     Dosage: 100MG TABS
     Route: 048
  12. CARAFATE [Concomitant]
     Dosage: UNK
     Route: 048
  13. VITAMIN B6 [Concomitant]
     Dosage: UNK
     Route: 048
  14. AROMASIN [Concomitant]
     Dosage: 25MG PO QD
     Route: 048
     Dates: start: 20061101
  15. OMEPRAZOLE [Concomitant]
     Dosage: 20MG PO QD
     Route: 048
  16. ARIMIDEX [Concomitant]
     Dosage: 1MG PO QD
     Route: 048
  17. VICODIN [Concomitant]
     Dosage: UNK
     Route: 048
  18. LOVENOX [Concomitant]
     Dosage: 50MG SQ
     Route: 058
  19. CLINDAMYCIN [Concomitant]
     Dosage: 600MG
     Dates: start: 20060503, end: 20060504
  20. MORPHINE [Concomitant]
     Dosage: UNK
  21. FENTANYL [Concomitant]
     Dosage: 100MCG
  22. DILAUDID [Concomitant]
     Dosage: 2MG
  23. HYDROCODONE [Concomitant]
  24. IBUPROFEN [Concomitant]
  25. MIRALAX [Concomitant]
  26. DOXORUBICIN [Concomitant]
  27. TAXOTERE [Concomitant]
  28. CISPLATIN [Concomitant]
  29. TAMOXIFEN CITRATE [Concomitant]
     Dosage: 20 MG, UNK
     Route: 048
  30. MEGACE [Concomitant]
  31. LETROZOLE [Concomitant]
     Dosage: 2.5 MG, UNK
  32. ACYCLOVIR [Concomitant]
     Dosage: 400 MG, UNK
  33. PERIOGARD [Concomitant]
  34. NOLVADEX [Concomitant]
  35. KEFLEX [Concomitant]
     Dosage: 500 MG, UNK
  36. AVELOX [Concomitant]
  37. CEFTIN [Concomitant]
  38. FLAGYL [Concomitant]
  39. FLEXERIL [Concomitant]
  40. ZITHROMAX [Concomitant]
  41. DIFLUCAN [Concomitant]
  42. PERIDEX [Concomitant]
  43. BLOOD AND RELATED PRODUCTS [Concomitant]
     Dosage: UNK
  44. ZYLET [Concomitant]
  45. CELEBREX [Concomitant]
  46. TRAZODONE HCL [Concomitant]
     Dosage: 600 MG, UNK
  47. RADIATION [Concomitant]
  48. PROTONIX [Concomitant]
  49. NAVELBINE [Concomitant]
  50. TOBRAMYCIN [Concomitant]

REACTIONS (32)
  - ANAEMIA [None]
  - ANXIETY [None]
  - BONE DISORDER [None]
  - BONE PAIN [None]
  - BRONCHITIS [None]
  - BURSITIS [None]
  - CHEST PAIN [None]
  - CONJUNCTIVITIS [None]
  - DECREASED INTEREST [None]
  - DYSPEPSIA [None]
  - FEMUR FRACTURE [None]
  - FIBROCYSTIC BREAST DISEASE [None]
  - GENERAL PHYSICAL HEALTH DETERIORATION [None]
  - GINGIVAL BLEEDING [None]
  - HERPES ZOSTER [None]
  - HIP SURGERY [None]
  - HOT FLUSH [None]
  - INSOMNIA [None]
  - JOINT SWELLING [None]
  - MENOPAUSE [None]
  - METASTASES TO BONE [None]
  - METASTATIC PAIN [None]
  - MIGRAINE [None]
  - NECROSIS [None]
  - OEDEMA PERIPHERAL [None]
  - OSTEOARTHRITIS [None]
  - OSTEONECROSIS [None]
  - OSTEOPENIA [None]
  - PAIN [None]
  - SINUSITIS [None]
  - VAGINAL INFECTION [None]
  - VULVOVAGINAL CANDIDIASIS [None]
